FAERS Safety Report 12168881 (Version 3)
Quarter: 2016Q2

REPORT INFORMATION
  Report Type: Spontaneous
  Country: JP (occurrence: JP)
  Receive Date: 20160310
  Receipt Date: 20160411
  Transmission Date: 20160815
  Serious: Yes (Other)
  Sender: FDA-Public Use
  Company Number: JP-ENDO PHARMACEUTICALS INC.-2016-001723

PATIENT
  Age: 7 Decade
  Sex: Male

DRUGS (1)
  1. XIAFLEX [Suspect]
     Active Substance: COLLAGENASE CLOSTRIDIUM HISTOLYTICUM
     Indication: DUPUYTREN^S CONTRACTURE
     Route: 026
     Dates: start: 20160208, end: 20160208

REACTIONS (1)
  - Avulsion fracture [Recovered/Resolved]

NARRATIVE: CASE EVENT DATE: 20160210
